FAERS Safety Report 21958924 (Version 1)
Quarter: 2023Q1

REPORT INFORMATION
  Report Type: Spontaneous
  Country: US (occurrence: US)
  Receive Date: 20230206
  Receipt Date: 20230206
  Transmission Date: 20230417
  Serious: No
  Sender: FDA-Public Use
  Company Number: US-AERIE-2022-002677

PATIENT
  Age: 86 Year
  Sex: Male

DRUGS (2)
  1. RHOPRESSA [Suspect]
     Active Substance: NETARSUDIL MESYLATE
     Indication: Exfoliation glaucoma
     Dosage: UNK
     Route: 047
  2. DORZOLAMIDE\TIMOLOL [Concomitant]
     Active Substance: DORZOLAMIDE\TIMOLOL
     Indication: Product used for unknown indication
     Dosage: UNK, BILATERAL MEDICATIONS
     Route: 047

REACTIONS (3)
  - Dacryostenosis acquired [Recovered/Resolved]
  - Cornea verticillata [Unknown]
  - Off label use [Unknown]
